FAERS Safety Report 9955540 (Version 1)
Quarter: 2014Q1

REPORT INFORMATION
  Report Type: Report from Study
  Country: US (occurrence: US)
  Receive Date: 20140304
  Receipt Date: 20140304
  Transmission Date: 20141002
  Serious: No
  Sender: FDA-Public Use
  Company Number: US-ABBVIE-13P-163-1077297-00

PATIENT
  Age: 65 Year
  Sex: Female

DRUGS (9)
  1. HUMIRA [Suspect]
     Indication: CROHN^S DISEASE
     Dates: start: 20130327
  2. HUMIRA [Suspect]
  3. EVISTA [Concomitant]
     Indication: OSTEOPOROSIS
     Dosage: DAILY
  4. UCERIS [Concomitant]
     Indication: CROHN^S DISEASE
     Dosage: DAILY
  5. CALCIUM [Concomitant]
     Indication: MINERAL SUPPLEMENTATION
  6. POTASSIUM [Concomitant]
     Indication: MINERAL SUPPLEMENTATION
  7. VITAMIN D [Concomitant]
     Indication: VITAMIN SUPPLEMENTATION
  8. FOLIC ACID [Concomitant]
     Indication: VITAMIN SUPPLEMENTATION
  9. B 12 [Concomitant]
     Indication: LARGE INTESTINE OPERATION
     Route: 050

REACTIONS (2)
  - Fatigue [Recovering/Resolving]
  - Muscle spasms [Recovering/Resolving]
